FAERS Safety Report 5877073-2 (Version None)
Quarter: 2008Q3

REPORT INFORMATION
  Report Type: 
  Country: None (occurrence: None)
  Receive Date: 20080910
  Receipt Date: 20080903
  Transmission Date: 20090109
  Serious: Yes (Other)
  Sender: FDA-Public Use
  Company Number: PHHY2008PS20137

PATIENT
  Age: 60 Year
  Sex: Female

DRUGS (2)
  1. EXFORGE [Suspect]
     Indication: HYPERTENSION
     Dosage: 160/5 MG/DAY
     Route: 048
     Dates: start: 20080826
  2. CALCIUM W/VITAMIN D NOS [Concomitant]
     Dosage: 800 MG OF CALCIUM/ O.25 MG OF VIT D

REACTIONS (2)
  - ERYTHEMA [None]
  - PRURITUS [None]
